FAERS Safety Report 18776118 (Version 1)
Quarter: 2021Q1

REPORT INFORMATION
  Report Type: Spontaneous
  Country: US (occurrence: US)
  Receive Date: 20210123
  Receipt Date: 20210123
  Transmission Date: 20210419
  Serious: No
  Sender: FDA-Public Use
  Company Number: US-SA-2021SA017857

PATIENT
  Sex: Male

DRUGS (2)
  1. LANTUS SOLOSTAR [Suspect]
     Active Substance: INSULIN GLARGINE
     Indication: DIABETES MELLITUS
     Dosage: 21 IU, QD
     Route: 065
  2. GLUCAGON. [Concomitant]
     Active Substance: GLUCAGON
     Dosage: UNK
     Route: 065

REACTIONS (1)
  - Trisomy 21 [Unknown]
